FAERS Safety Report 6419721-4 (Version None)
Quarter: 2009Q4

REPORT INFORMATION
  Report Type: 
  Country: None (occurrence: None)
  Receive Date: 20091013
  Receipt Date: 20090820
  Transmission Date: 20100525
  Serious: No
  Sender: FDA-Public Use
  Company Number: 2009BM000201

PATIENT
  Age: 14 Year
  Sex: Male
  Weight: 64.5 kg

DRUGS (2)
  1. KUVAN [Suspect]
     Indication: PHENYLKETONURIA
     Dosage: 20 MG/KG;QD;PO
     Route: 048
     Dates: start: 20071113
  2. DOXYCYCLINE (CON.) [Concomitant]

REACTIONS (1)
  - NEUTROPENIA [None]
